FAERS Safety Report 19425398 (Version 1)
Quarter: 2021Q2

REPORT INFORMATION
  Report Type: Spontaneous
  Country: CA (occurrence: CA)
  Receive Date: 20210616
  Receipt Date: 20210616
  Transmission Date: 20210717
  Serious: Yes (Other)
  Sender: FDA-Public Use
  Company Number: CA-BAYER-2021-000289

PATIENT
  Age: 55 Year
  Sex: Female
  Weight: 86.2 kg

DRUGS (3)
  1. GADOVIST [Suspect]
     Active Substance: GADOBUTROL
     Indication: MAGNETIC RESONANCE IMAGING
  2. GADOVIST [Suspect]
     Active Substance: GADOBUTROL
     Indication: HEADACHE
     Dosage: 9 ML, ONCE
     Route: 042
     Dates: start: 20201231, end: 20201231
  3. GADOVIST [Suspect]
     Active Substance: GADOBUTROL
     Indication: MENINGEAL DISORDER

REACTIONS (2)
  - Throat irritation [Recovered/Resolved]
  - Erythema [Recovered/Resolved]

NARRATIVE: CASE EVENT DATE: 20201231
